FAERS Safety Report 10599731 (Version 8)
Quarter: 2016Q4

REPORT INFORMATION
  Report Type: Report from Study
  Country: US (occurrence: US)
  Receive Date: 20141121
  Receipt Date: 20161108
  Transmission Date: 20170206
  Serious: Yes (Other)
  Sender: FDA-Public Use
  Company Number: US-SA-2014SA159137

PATIENT
  Age: 59 Year
  Sex: Female

DRUGS (16)
  1. TRILEPTAL [Concomitant]
     Active Substance: OXCARBAZEPINE
     Dosage: 300 MG
  2. TOPIRAMATE. [Concomitant]
     Active Substance: TOPIRAMATE
     Dosage: 100 MG
  3. OMEPRAZOLE. [Concomitant]
     Active Substance: OMEPRAZOLE
     Dosage: 40 MG
  4. HYDROCORTISONE. [Concomitant]
     Active Substance: HYDROCORTISONE
  5. AUBAGIO [Suspect]
     Active Substance: TERIFLUNOMIDE
     Indication: MULTIPLE SCLEROSIS
     Route: 048
     Dates: start: 201410, end: 201502
  6. ULTRAM [Concomitant]
     Active Substance: TRAMADOL HYDROCHLORIDE
     Dosage: 50 MG
  7. ERGOCALCIFEROL. [Concomitant]
     Active Substance: ERGOCALCIFEROL
     Dosage: 1000 UNIT
  8. BACLOFEN. [Concomitant]
     Active Substance: BACLOFEN
     Dosage: 20 MG
  9. ACTHAR [Concomitant]
     Active Substance: CORTICOTROPIN
     Dates: start: 201309, end: 201409
  10. CALCIUM [Concomitant]
     Active Substance: CALCIUM
     Dosage: 1200 MG TABLET CHEW
  11. IBUPROFEN. [Concomitant]
     Active Substance: IBUPROFEN
     Dosage: 200 MG
  12. COREG [Concomitant]
     Active Substance: CARVEDILOL
     Dosage: 6.25 MG TABLET
  13. FLONASE [Concomitant]
     Active Substance: FLUTICASONE PROPIONATE
     Dosage: 0.05 % NASAL SPRAY
  14. COPAXONE [Concomitant]
     Active Substance: GLATIRAMER ACETATE
     Dates: start: 2004, end: 20141001
  15. BENADRYL [Concomitant]
     Active Substance: DIPHENHYDRAMINE HYDROCHLORIDE
  16. ASTEPRO [Concomitant]
     Active Substance: AZELASTINE HYDROCHLORIDE

REACTIONS (17)
  - Rash [Unknown]
  - Hepatic enzyme increased [Unknown]
  - Muscular weakness [Unknown]
  - Nausea [Unknown]
  - Fatigue [Unknown]
  - Dizziness [Unknown]
  - White blood cell count decreased [Unknown]
  - Diarrhoea [Unknown]
  - Skin cancer [Unknown]
  - Feeling abnormal [Unknown]
  - Hepatic enzyme decreased [Unknown]
  - Decreased appetite [Unknown]
  - Abdominal pain [Unknown]
  - Vomiting [Unknown]
  - Weight decreased [Unknown]
  - Headache [Unknown]
  - Malaise [Unknown]

NARRATIVE: CASE EVENT DATE: 201410
